FAERS Safety Report 14108644 (Version 1)
Quarter: 2017Q4

REPORT INFORMATION
  Report Type: Spontaneous
  Country: GB (occurrence: GB)
  Receive Date: 20171019
  Receipt Date: 20171019
  Transmission Date: 20180321
  Serious: Yes (Hospitalization)
  Sender: FDA-Public Use
  Company Number: GB-BAYER-2017-183713

PATIENT
  Age: 90 Year
  Sex: Female

DRUGS (2)
  1. CIPROXIN 250 MG [Suspect]
     Active Substance: CIPROFLOXACIN
     Dosage: 250 MG, BID
     Route: 048
     Dates: start: 20170824, end: 20170830
  2. CIPROXIN 500 MG [Suspect]
     Active Substance: CIPROFLOXACIN
     Indication: URINARY TRACT INFECTION PSEUDOMONAL
     Dosage: 500 MG, BID
     Route: 048
     Dates: start: 20170830, end: 20170831

REACTIONS (3)
  - Cholestasis [Recovering/Resolving]
  - Liver function test abnormal [Recovering/Resolving]
  - Confusional state [Recovering/Resolving]

NARRATIVE: CASE EVENT DATE: 20170831
